FAERS Safety Report 5079807-6 (Version None)
Quarter: 2006Q3

REPORT INFORMATION
  Report Type: 
  Country: None (occurrence: None)
  Receive Date: 20060720
  Receipt Date: 20060504
  Transmission Date: 20061208
  Serious: Yes (Other)
  Sender: FDA-Public Use
  Company Number: 2005078604

PATIENT
  Age: 54 Year
  Sex: Female

DRUGS (1)
  1. CELEBREX [Suspect]
     Indication: ILL-DEFINED DISORDER
     Dosage: 200 MG (200 MG,1 IN 1 D),ORAL
     Route: 048
     Dates: start: 20030201, end: 20031101

REACTIONS (1)
  - MYOCARDIAL INFARCTION [None]
